FAERS Safety Report 19785743 (Version 3)
Quarter: 2021Q4

REPORT INFORMATION
  Report Type: Spontaneous
  Country: US (occurrence: None)
  Receive Date: 20210903
  Receipt Date: 20211216
  Transmission Date: 20220303
  Serious: Yes (Hospitalization)
  Sender: FDA-Public Use
  Company Number: US-ROCHE-2901077

PATIENT
  Sex: Male
  Weight: 66.284 kg

DRUGS (4)
  1. HEMLIBRA [Suspect]
     Active Substance: EMICIZUMAB-KXWH
     Indication: Factor VIII deficiency
     Dosage: ONGOING: YES
     Route: 058
     Dates: start: 20180919
  2. HEMLIBRA [Suspect]
     Active Substance: EMICIZUMAB-KXWH
     Indication: Haemophilia
     Dosage: ONGOING-YES, 105MG/0.7 ML
     Route: 058
     Dates: start: 20210727
  3. HEMLIBRA [Suspect]
     Active Substance: EMICIZUMAB-KXWH
     Dosage: ONGOING-YES, 105MG/0.7 ML
     Route: 058
     Dates: start: 201808
  4. HEMLIBRA [Suspect]
     Active Substance: EMICIZUMAB-KXWH
     Dosage: ONGOING-YES, 105MG/0.7 ML
     Route: 058
     Dates: start: 20210821

REACTIONS (2)
  - Lung neoplasm malignant [Unknown]
  - Pulmonary haemorrhage [Unknown]
